FAERS Safety Report 23329142 (Version 1)
Quarter: 2023Q4

REPORT INFORMATION
  Report Type: Report from Study
  Country: IT (occurrence: None)
  Receive Date: 20231222
  Receipt Date: 20231222
  Transmission Date: 20240110
  Serious: Yes (Death, Other)
  Sender: FDA-Public Use
  Company Number: IT-Unichem Pharmaceuticals (USA) Inc-UCM202312-001584

PATIENT
  Age: 56 Year
  Sex: Male
  Weight: 73 kg

DRUGS (4)
  1. AMLODIPINE [Suspect]
     Active Substance: AMLODIPINE BESYLATE
     Indication: Product used for unknown indication
     Dosage: 14 TABLETS PER BOTTLE AT 10 MG EACH
  2. CARVEDILOL [Suspect]
     Active Substance: CARVEDILOL
     Indication: Product used for unknown indication
     Dosage: 60 TABLETS PER BOTTLE AT 25 MG EACH
  3. DOXAZOSIN [Suspect]
     Active Substance: DOXAZOSIN MESYLATE
     Indication: Product used for unknown indication
     Dosage: 30 TABLETS PER BOTTLE AT 2 MG EACH
  4. DOXAZOSIN [Suspect]
     Active Substance: DOXAZOSIN MESYLATE
     Dosage: 20 TABLETS PER BOTTLE AT 4 MG EACH

REACTIONS (6)
  - Brain oedema [Fatal]
  - Pulmonary oedema [Fatal]
  - Arteriosclerosis coronary artery [Fatal]
  - Toxicity to various agents [Fatal]
  - Overdose [Fatal]
  - Suicide attempt [Fatal]
